FAERS Safety Report 8491719-4 (Version None)
Quarter: 2012Q3

REPORT INFORMATION
  Report Type: 
  Country: None (occurrence: None)
  Receive Date: 20120706
  Receipt Date: 20120703
  Transmission Date: 20120928
  Serious: Yes (Other)
  Sender: FDA-Public Use
  Company Number: BR-PFIZER INC-2012160158

PATIENT
  Age: 44 Year
  Sex: Female

DRUGS (2)
  1. PRISTIQ [Suspect]
     Indication: DEPRESSION
  2. PRISTIQ [Suspect]
     Indication: ANXIETY
     Dosage: 50 MG (ONE TABLET), 1X/DAY
     Route: 048
     Dates: end: 20120101

REACTIONS (8)
  - PAIN [None]
  - SOCIAL AVOIDANT BEHAVIOUR [None]
  - EYE DISORDER [None]
  - MENTAL STATUS CHANGES [None]
  - EMOTIONAL DISORDER [None]
  - ACTIVITIES OF DAILY LIVING IMPAIRED [None]
  - SUICIDAL IDEATION [None]
  - IRRITABILITY [None]
